FAERS Safety Report 4514379-3 (Version None)
Quarter: 2004Q4

REPORT INFORMATION
  Report Type: 
  Country: None (occurrence: None)
  Receive Date: 20041124
  Receipt Date: 20041114
  Transmission Date: 20050328
  Serious: Yes (Other)
  Sender: FDA-Public Use
  Company Number: 2004-11-0013

PATIENT
  Age: 43 Year
  Sex: Male

DRUGS (4)
  1. CLARITIN [Suspect]
     Indication: RHINITIS ALLERGIC
     Dosage: 10 MG ORAL
     Route: 048
     Dates: start: 20041025
  2. FLUTIDE (FLUTICASONE PROPIONATE) [Concomitant]
  3. FLUTICASONE PROPIONATE NASAL SOLUTION  NASAL DROPS [Concomitant]
  4. DEPAKENE ORAL [Concomitant]

REACTIONS (1)
  - EPILEPSY [None]
